FAERS Safety Report 24308094 (Version 1)
Quarter: 2024Q3

REPORT INFORMATION
  Report Type: Other
  Country: US (occurrence: US)
  Receive Date: 20240911
  Receipt Date: 20240911
  Transmission Date: 20241017
  Serious: No
  Sender: SIGMA TAU
  Company Number: US-LEADIANT BIOSCIENCES, INC.-2023STPI000467

PATIENT
  Sex: Female

DRUGS (1)
  1. MATULANE [Suspect]
     Active Substance: PROCARBAZINE HYDROCHLORIDE
     Indication: Non-Hodgkin^s lymphoma
     Dosage: 50 MILLIGRAMS, TAKE 3 CAPSULES (150 MG TOTAL) DAILY ON DAYS 7-13 OF EACH CHEMO CYCLE EVERY 21 DAY CY
     Route: 048
     Dates: start: 20231125

REACTIONS (1)
  - Hepatic function abnormal [Recovered/Resolved]
